FAERS Safety Report 25771530 (Version 1)
Quarter: 2025Q3

REPORT INFORMATION
  Report Type: Spontaneous
  Country: US (occurrence: US)
  Receive Date: 20250908
  Receipt Date: 20250908
  Transmission Date: 20251021
  Serious: No
  Sender: DOMPE FARMACEUTICI
  Company Number: US-FARMAPROD-202504-1400

PATIENT
  Sex: Female

DRUGS (7)
  1. OXERVATE [Suspect]
     Active Substance: CENEGERMIN-BKBJ
     Indication: Neurotrophic keratopathy
     Route: 047
     Dates: start: 20250424
  2. OXERVATE [Suspect]
     Active Substance: CENEGERMIN-BKBJ
     Dates: end: 20250511
  3. METOPROLOL SUCCINATE [Concomitant]
     Active Substance: METOPROLOL SUCCINATE
  4. LEVOTHYROXINE SODIUM [Concomitant]
     Active Substance: LEVOTHYROXINE SODIUM
  5. LASIX [Concomitant]
     Active Substance: FUROSEMIDE
  6. TRAMADOL HCL [Concomitant]
     Active Substance: TRAMADOL HYDROCHLORIDE
  7. SYSTANE ULTRA PF [Concomitant]

REACTIONS (5)
  - Abnormal sensation in eye [Unknown]
  - Dry eye [Unknown]
  - Eyelid irritation [Recovering/Resolving]
  - Headache [Recovering/Resolving]
  - Facial pain [Recovering/Resolving]
